FAERS Safety Report 7508011-4 (Version None)
Quarter: 2011Q2

REPORT INFORMATION
  Report Type: 
  Country: None (occurrence: None)
  Receive Date: 20110527
  Receipt Date: 20110519
  Transmission Date: 20111010
  Serious: Yes (Hospitalization)
  Sender: FDA-Public Use
  Company Number: US-US-EMD SERONO, INC.-7013998

PATIENT
  Sex: Female
  Weight: 114 kg

DRUGS (4)
  1. HYPERTENSION MEDICATION [Concomitant]
     Indication: HYPERTENSION
  2. ASPIRIN [Concomitant]
  3. REBIF [Suspect]
     Indication: MULTIPLE SCLEROSIS
     Route: 058
     Dates: start: 20100312, end: 20100501
  4. REBIF [Suspect]
     Route: 058
     Dates: start: 20101214

REACTIONS (5)
  - RENAL FAILURE [None]
  - FALL [None]
  - AORTIC DISSECTION [None]
  - HYPERTENSION [None]
  - ANEURYSM [None]
